FAERS Safety Report 11534256 (Version 1)
Quarter: 2015Q3

REPORT INFORMATION
  Report Type: Spontaneous
  Country: US (occurrence: None)
  Receive Date: 20150918
  Receipt Date: 20150918
  Transmission Date: 20151125
  Serious: Yes (Hospitalization)
  Sender: FDA-Public Use
  Company Number: None

PATIENT
  Age: 65 Year
  Sex: Male
  Weight: 88.9 kg

DRUGS (4)
  1. MERCAPTOPURINE. [Suspect]
     Active Substance: MERCAPTOPURINE
     Dates: end: 20150810
  2. CYTARABINE. [Suspect]
     Active Substance: CYTARABINE
     Dates: end: 20150810
  3. METHOTREXATE [Suspect]
     Active Substance: METHOTREXATE
     Dates: end: 20150810
  4. CYCLOPHOSPHAMIDE. [Suspect]
     Active Substance: CYCLOPHOSPHAMIDE
     Dates: end: 20150803

REACTIONS (12)
  - Skin abrasion [None]
  - Fatigue [None]
  - Scab [None]
  - Skin discolouration [None]
  - Feeling hot [None]
  - Sinus tachycardia [None]
  - Chills [None]
  - Febrile neutropenia [None]
  - Peripheral swelling [None]
  - Hypersensitivity [None]
  - Drug dose omission [None]
  - Dizziness postural [None]

NARRATIVE: CASE EVENT DATE: 20150810
